FAERS Safety Report 7647850-6 (Version None)
Quarter: 2011Q3

REPORT INFORMATION
  Report Type: 
  Country: None (occurrence: None)
  Receive Date: 20110801
  Receipt Date: 20110728
  Transmission Date: 20111222
  Serious: Yes (Death)
  Sender: FDA-Public Use
  Company Number: US-PFIZER INC-2011173084

PATIENT

DRUGS (3)
  1. ARTHROTEC [Suspect]
  2. LYRICA [Suspect]
  3. NEURONTIN [Suspect]

REACTIONS (1)
  - DEATH [None]
